FAERS Safety Report 8202147-0 (Version None)
Quarter: 2012Q1

REPORT INFORMATION
  Report Type: 
  Country: None (occurrence: None)
  Receive Date: 20120312
  Receipt Date: 20120306
  Transmission Date: 20120608
  Serious: No
  Sender: FDA-Public Use
  Company Number: US-PFIZER INC-2012043580

PATIENT
  Sex: Female

DRUGS (3)
  1. THYROID TAB [Suspect]
     Dosage: UNK
     Dates: start: 19750101, end: 19850101
  2. LEVOXYL [Suspect]
     Indication: HYPOTHYROIDISM
     Dosage: 100 UG, UNK
     Dates: start: 19750101, end: 19800101
  3. LEVOXYL [Suspect]
     Dosage: 0.1 MG, DAILY
     Route: 048

REACTIONS (1)
  - MUSCULOSKELETAL DISCOMFORT [None]
